FAERS Safety Report 4291276-2 (Version None)
Quarter: 2004Q1

REPORT INFORMATION
  Report Type: 
  Country: None (occurrence: None)
  Receive Date: 20040211
  Receipt Date: 20031201
  Transmission Date: 20041129
  Serious: No
  Sender: FDA-Public Use
  Company Number: US-GLAXOSMITHKLINE-A0441470A

PATIENT
  Age: 82 Year
  Sex: Female

DRUGS (4)
  1. PAROXETINE [Suspect]
     Dosage: 20MG PER DAY
     Route: 048
     Dates: start: 20031105
  2. WARFARIN SODIUM [Concomitant]
  3. ATENOLOL [Concomitant]
  4. TYLENOL (CAPLET) [Concomitant]

REACTIONS (3)
  - ANXIETY [None]
  - DIZZINESS [None]
  - HYPERHIDROSIS [None]
